FAERS Safety Report 4855528-7 (Version None)
Quarter: 2005Q4

REPORT INFORMATION
  Report Type: 
  Country: None (occurrence: None)
  Receive Date: 20051214
  Receipt Date: 20051129
  Transmission Date: 20060501
  Serious: Yes (Hospitalization)
  Sender: FDA-Public Use
  Company Number: 2005S1000341

PATIENT
  Age: 38 Year
  Sex: Male

DRUGS (5)
  1. ACITRETIN [Suspect]
     Indication: PSORIASIS
     Dosage: 50 MG; QD; PO
     Route: 048
  2. METHOTREXATE [Suspect]
     Indication: ERYTHRODERMIC PSORIASIS
     Dosage: 10 MG; QW; PO
     Route: 048
  3. NYSTATIN [Concomitant]
  4. HYDROCORTISONE [Concomitant]
  5. COAL TAR [Concomitant]

REACTIONS (22)
  - ARTHRALGIA [None]
  - BAND NEUTROPHIL COUNT INCREASED [None]
  - BLOOD CULTURE POSITIVE [None]
  - CANDIDIASIS [None]
  - CHILLS [None]
  - CONDITION AGGRAVATED [None]
  - CULTURE POSITIVE [None]
  - DERMATITIS EXFOLIATIVE [None]
  - ECZEMA HERPETICUM [None]
  - HERPES SIMPLEX [None]
  - HYPOALBUMINAEMIA [None]
  - HYPOTENSION [None]
  - IRON DEFICIENCY ANAEMIA [None]
  - LEUKOCYTOSIS [None]
  - MUSCULOSKELETAL STIFFNESS [None]
  - PAIN [None]
  - PYREXIA [None]
  - SEPSIS [None]
  - STAPHYLOCOCCAL INFECTION [None]
  - TACHYCARDIA [None]
  - TREMOR [None]
  - UNEVALUABLE EVENT [None]
